FAERS Safety Report 4663231-1 (Version None)
Quarter: 2005Q2

REPORT INFORMATION
  Report Type: 
  Country: None (occurrence: None)
  Receive Date: 20050512
  Receipt Date: 20050503
  Transmission Date: 20051028
  Serious: Yes (Disabling)
  Sender: FDA-Public Use
  Company Number: GXKR2005GB00984

PATIENT
  Age: 71 Year
  Sex: Female

DRUGS (4)
  1. AMOXICILLIN [Suspect]
     Indication: TOOTH INFECTION
     Dosage: SEE IMAGE
     Dates: start: 20031201, end: 20031201
  2. AMOXICILLIN [Suspect]
     Indication: TOOTH INFECTION
     Dosage: SEE IMAGE
     Dates: start: 20050401, end: 20050401
  3. ASPIRIN [Concomitant]
  4. BENDROFLUAZIDE (BENDROFLUMETHIAZIDE) [Concomitant]

REACTIONS (2)
  - COORDINATION ABNORMAL [None]
  - DYSPHASIA [None]
